FAERS Safety Report 12958445 (Version 1)
Quarter: 2016Q4

REPORT INFORMATION
  Report Type: Spontaneous
  Country: US (occurrence: US)
  Receive Date: 20161121
  Receipt Date: 20161121
  Transmission Date: 20170207
  Serious: No
  Sender: FDA-Public Use
  Company Number: US-TEVA-644510USA

PATIENT
  Sex: Female
  Weight: 86.26 kg

DRUGS (9)
  1. DULOXETINE. [Suspect]
     Active Substance: DULOXETINE
     Indication: DEPRESSION
  2. VENLAFAXINE XR [Concomitant]
     Active Substance: VENLAFAXINE HYDROCHLORIDE
     Indication: POST-TRAUMATIC STRESS DISORDER
     Dosage: 150 MILLIGRAM DAILY;
  3. TEMAZEPAM. [Concomitant]
     Active Substance: TEMAZEPAM
     Indication: SLEEP DISORDER
     Dosage: 30 MILLIGRAM DAILY;
     Route: 048
  4. DIAZEPAM. [Suspect]
     Active Substance: DIAZEPAM
     Indication: ANXIETY
     Dosage: 30 MILLIGRAM DAILY;
     Dates: start: 2013, end: 2014
  5. DULOXETINE. [Suspect]
     Active Substance: DULOXETINE
     Indication: INTENTIONAL SELF-INJURY
  6. DULOXETINE. [Suspect]
     Active Substance: DULOXETINE
     Indication: POST-TRAUMATIC STRESS DISORDER
     Dosage: 60 MILLIGRAM DAILY;
     Route: 048
     Dates: start: 201407
  7. VENLAFAXINE XR [Concomitant]
     Active Substance: VENLAFAXINE HYDROCHLORIDE
     Indication: OBSESSIVE-COMPULSIVE DISORDER
  8. DULOXETINE. [Suspect]
     Active Substance: DULOXETINE
     Indication: OBSESSIVE-COMPULSIVE DISORDER
  9. DULOXETINE. [Suspect]
     Active Substance: DULOXETINE
     Indication: ANXIETY

REACTIONS (12)
  - Headache [Not Recovered/Not Resolved]
  - Anger [Unknown]
  - Eye disorder [Unknown]
  - Malaise [Unknown]
  - Drug ineffective [Unknown]
  - Restless legs syndrome [Not Recovered/Not Resolved]
  - Nausea [Not Recovered/Not Resolved]
  - Muscle spasms [Not Recovered/Not Resolved]
  - Insomnia [Unknown]
  - Amnesia [Not Recovered/Not Resolved]
  - Libido decreased [Not Recovered/Not Resolved]
  - Weight increased [Not Recovered/Not Resolved]
